FAERS Safety Report 7677405-9 (Version None)
Quarter: 2011Q3

REPORT INFORMATION
  Report Type: 
  Country: None (occurrence: None)
  Receive Date: 20110811
  Receipt Date: 20100622
  Transmission Date: 20111222
  Serious: No
  Sender: FDA-Public Use
  Company Number: US-BRISTOL-MYERS SQUIBB COMPANY-15162662

PATIENT
  Age: 44 Year
  Sex: Female

DRUGS (4)
  1. ALBUTEROL SULFATE AUTOHALER [Concomitant]
  2. CLONAZEPAM [Concomitant]
  3. REYATAZ [Suspect]
     Indication: HIV INFECTION
  4. GLUCOPHAGE [Concomitant]

REACTIONS (3)
  - CONJUNCTIVITIS INFECTIVE [None]
  - RASH [None]
  - SWELLING FACE [None]
